FAERS Safety Report 15041864 (Version 2)
Quarter: 2019Q2

REPORT INFORMATION
  Report Type: Spontaneous
  Country: CA (occurrence: CA)
  Receive Date: 20180621
  Receipt Date: 20190521
  Transmission Date: 20190711
  Serious: Yes (Other)
  Sender: FDA-Public Use
  Company Number: CA-CONCORDIA PHARMACEUTICALS INC.-GSH201806-002092

PATIENT
  Sex: Female

DRUGS (7)
  1. HYDROXYCHLOROQUINE 200 MG TABLET [Suspect]
     Active Substance: HYDROXYCHLOROQUINE
     Route: 065
     Dates: start: 200604, end: 200605
  2. METHOTREXATE. [Concomitant]
     Active Substance: METHOTREXATE
     Dates: start: 200605, end: 20080228
  3. SULFASALAZINE. [Concomitant]
     Active Substance: SULFASALAZINE
     Dates: start: 200901
  4. HUMIRA [Concomitant]
     Active Substance: ADALIMUMAB
     Dates: start: 201106, end: 201204
  5. ENBREL [Concomitant]
     Active Substance: ETANERCEPT
     Dates: start: 20130725, end: 20180531
  6. ARAVA [Concomitant]
     Active Substance: LEFLUNOMIDE
     Dates: start: 20070301
  7. SIMPONI [Concomitant]
     Active Substance: GOLIMUMAB
     Dates: start: 201206, end: 201305

REACTIONS (3)
  - Drug ineffective [Unknown]
  - Drug intolerance [Unknown]
  - Rheumatoid arthritis [Unknown]
